FAERS Safety Report 10050414 (Version 3)
Quarter: 2014Q2

REPORT INFORMATION
  Report Type: Spontaneous
  Country: US (occurrence: US)
  Receive Date: 20140401
  Receipt Date: 20140429
  Transmission Date: 20141212
  Serious: Yes (Other)
  Sender: FDA-Public Use
  Company Number: US-SA-2014SA036453

PATIENT
  Age: 73 Year
  Sex: Female

DRUGS (7)
  1. LANTUS SOLOSTAR [Suspect]
     Indication: TYPE 2 DIABETES MELLITUS
     Dosage: DOSE:25 UNIT(S)
     Route: 058
     Dates: start: 2010
  2. LANTUS SOLOSTAR [Suspect]
     Indication: TYPE 2 DIABETES MELLITUS
     Dosage: DOSE:25 UNIT(S)
     Route: 058
  3. SOLOSTAR [Concomitant]
     Dates: start: 2010
  4. SOLOSTAR [Concomitant]
  5. KLOR-CON [Concomitant]
  6. FUROSEMIDE [Concomitant]
  7. PRAVASTATIN [Concomitant]
     Indication: GASTRIC DISORDER

REACTIONS (3)
  - Loss of consciousness [Unknown]
  - Feeling abnormal [Unknown]
  - Off label use [Unknown]
